FAERS Safety Report 15550123 (Version 1)
Quarter: 2018Q4

REPORT INFORMATION
  Report Type: Spontaneous
  Country: US (occurrence: US)
  Receive Date: 20181025
  Receipt Date: 20181025
  Transmission Date: 20190205
  Serious: No
  Sender: FDA-Public Use
  Company Number: US-PFIZER INC-2018423562

PATIENT
  Age: 75 Year
  Sex: Female
  Weight: 63.49 kg

DRUGS (4)
  1. PROZAC [Concomitant]
     Active Substance: FLUOXETINE HYDROCHLORIDE
     Indication: DEPRESSION
     Dosage: 60 MG, DAILY
     Route: 048
  2. KLONOPIN [Concomitant]
     Active Substance: CLONAZEPAM
     Indication: ANXIETY
     Dosage: 1 MG, 1X/DAY, (1 MG TABLET, TAKES 1 EVERY EVENING BY MOUTH)
     Route: 048
  3. AMLODIPINE BESYLATE. [Concomitant]
     Active Substance: AMLODIPINE BESYLATE
     Indication: HYPERTENSION
     Dosage: 2.5 MG, 1X/DAY, (2.5 MG TABLET TAKES EVERY EVENING BY MOUTH)
     Route: 048
     Dates: start: 201706
  4. XELJANZ [Suspect]
     Active Substance: TOFACITINIB CITRATE
     Indication: RHEUMATOID ARTHRITIS
     Dosage: 5 MG, 2X/DAY (TAKES 1 IN THE MORNING AND 1 AT NIGHT BY MOUTH)
     Route: 048
     Dates: start: 201709

REACTIONS (3)
  - Fatigue [Not Recovered/Not Resolved]
  - Asthenia [Not Recovered/Not Resolved]
  - Hypersomnia [Unknown]

NARRATIVE: CASE EVENT DATE: 201712
